FAERS Safety Report 24383712 (Version 2)
Quarter: 2025Q2

REPORT INFORMATION
  Report Type: Spontaneous
  Country: US (occurrence: US)
  Receive Date: 20241001
  Receipt Date: 20250411
  Transmission Date: 20250717
  Serious: Yes (Life-Threatening, Hospitalization, Other)
  Sender: RECKITT BENCKISER
  Company Number: US-INDIVIOR US-INDV-156600-2024

PATIENT
  Age: 48 Year
  Sex: Male

DRUGS (1)
  1. SUBOXONE [Suspect]
     Active Substance: BUPRENORPHINE HYDROCHLORIDE\NALOXONE HYDROCHLORIDE
     Indication: Drug dependence
     Route: 065

REACTIONS (9)
  - Multiple organ dysfunction syndrome [Recovering/Resolving]
  - Toxicity to various agents [Recovering/Resolving]
  - Inappropriate schedule of product discontinuation [Recovered/Resolved]
  - Obstructive sleep apnoea syndrome [Unknown]
  - Asthma [Unknown]
  - Depression [Unknown]
  - Anxiety [Unknown]
  - Drug dependence [Unknown]
  - Drug withdrawal syndrome [Unknown]
